FAERS Safety Report 21786243 (Version 3)
Quarter: 2023Q1

REPORT INFORMATION
  Report Type: Spontaneous
  Country: EG (occurrence: EG)
  Receive Date: 20221228
  Receipt Date: 20230203
  Transmission Date: 20230418
  Serious: Yes (Life-Threatening, Hospitalization, Other)
  Sender: FDA-Public Use
  Company Number: EG-NOVOPROD-1004523

PATIENT
  Age: 53 Year
  Sex: Male
  Weight: 70 kg

DRUGS (4)
  1. ACTRAPID [Suspect]
     Active Substance: INSULIN HUMAN
     Dosage: ADJUSTED DOSES
     Route: 058
  2. ACTRAPID [Suspect]
     Active Substance: INSULIN HUMAN
     Indication: Diabetes mellitus
     Dosage: 57 IU, QD (20 U MORNING AND 25 U AT LUNCH AND 12 U AT NIGHT )
     Route: 058
  3. LANTUS [Concomitant]
     Active Substance: INSULIN GLARGINE
     Indication: Product used for unknown indication
     Dosage: 10-12 U DOSE
  4. LANTUS [Concomitant]
     Active Substance: INSULIN GLARGINE
     Dosage: ADJUSTED DOSES

REACTIONS (8)
  - Hepatic cirrhosis [Not Recovered/Not Resolved]
  - Neoplasm malignant [Not Recovered/Not Resolved]
  - Ureteric obstruction [Not Recovered/Not Resolved]
  - Renal disorder [Recovered/Resolved]
  - Diabetic hyperglycaemic coma [Not Recovered/Not Resolved]
  - Diabetes mellitus inadequate control [Unknown]
  - Blood glucose fluctuation [Unknown]
  - Hypoglycaemia [Unknown]

NARRATIVE: CASE EVENT DATE: 20211001
